FAERS Safety Report 14996522 (Version 1)
Quarter: 2018Q2

REPORT INFORMATION
  Report Type: Spontaneous
  Country: JP (occurrence: JP)
  Receive Date: 20180611
  Receipt Date: 20180611
  Transmission Date: 20180711
  Serious: Yes (Other)
  Sender: FDA-Public Use
  Company Number: JP-BAYER-2018-106690

PATIENT
  Age: 54 Year
  Sex: Male

DRUGS (2)
  1. XOFIGO [Suspect]
     Active Substance: RADIUM RA-223 DICHLORIDE
     Indication: HORMONE-REFRACTORY PROSTATE CANCER
     Dates: start: 20170518, end: 20171005
  2. XOFIGO [Suspect]
     Active Substance: RADIUM RA-223 DICHLORIDE
     Indication: METASTASES TO BONE

REACTIONS (5)
  - Radiation proctitis [Recovering/Resolving]
  - Blood alkaline phosphatase decreased [None]
  - Haemoglobin decreased [None]
  - Melaena [Recovering/Resolving]
  - Platelet count decreased [None]

NARRATIVE: CASE EVENT DATE: 20170907
